FAERS Safety Report 9639000 (Version 1)
Quarter: 2013Q4

REPORT INFORMATION
  Report Type: Spontaneous
  Country: FR (occurrence: None)
  Receive Date: 20131018
  Receipt Date: 20131018
  Transmission Date: 20140711
  Serious: Yes (Hospitalization)
  Sender: FDA-Public Use
  Company Number: 2013CP000119

PATIENT
  Age: 92 Year
  Sex: Female

DRUGS (10)
  1. PERFALGAN [Suspect]
     Indication: PRODUCT USED FOR UNKNOWN INDICATION
     Route: 042
     Dates: start: 20130817, end: 20130818
  2. PLAVIX [Suspect]
     Indication: PRODUCT USED FOR UNKNOWN INDICATION
     Route: 048
     Dates: start: 20130817
  3. DOLIPRANE (PARACETAMOL) [Suspect]
     Indication: PRODUCT USED FOR UNKNOWN INDICATION
     Route: 048
     Dates: start: 201309
  4. CRESTOR [Concomitant]
  5. ASPEGIC [Concomitant]
  6. COAPROVEL [Concomitant]
  7. ATENOLOL [Concomitant]
  8. IPERTEN [Concomitant]
  9. OMEPRAZOLE [Concomitant]
  10. PRAXILENE [Concomitant]

REACTIONS (4)
  - Drug eruption [None]
  - Dermatitis bullous [None]
  - Skin erosion [None]
  - Renal failure acute [None]
